FAERS Safety Report 19735056 (Version 2)
Quarter: 2021Q3

REPORT INFORMATION
  Report Type: Report from Study
  Country: None (occurrence: CA)
  Receive Date: 20210824
  Receipt Date: 20210925
  Transmission Date: 20211014
  Serious: Yes (Other)
  Sender: FDA-Public Use
  Company Number: CA-ABBVIE-21K-028-4049068-00

PATIENT
  Age: 69 Year
  Sex: Male
  Weight: 100.33 kg

DRUGS (3)
  1. METHOTREXATE. [Suspect]
     Active Substance: METHOTREXATE
     Route: 065
     Dates: start: 201101, end: 201706
  2. HUMIRA [Suspect]
     Active Substance: ADALIMUMAB
     Indication: PSORIATIC ARTHROPATHY
     Route: 058
     Dates: start: 201106, end: 202003
  3. METHOTREXATE. [Suspect]
     Active Substance: METHOTREXATE
     Indication: PSORIATIC ARTHROPATHY
     Route: 065
     Dates: start: 199911, end: 200409

REACTIONS (26)
  - Joint noise [Unknown]
  - Dyspnoea exertional [Unknown]
  - Aspartate aminotransferase increased [Unknown]
  - Hypertension [Unknown]
  - Blood immunoglobulin G increased [Unknown]
  - Anti-cyclic citrullinated peptide antibody positive [Unknown]
  - Lymphocyte count decreased [Unknown]
  - Haematocrit decreased [Unknown]
  - Blood immunoglobulin A increased [Unknown]
  - Osteoarthritis [Unknown]
  - Alanine aminotransferase increased [Unknown]
  - Arthralgia [Unknown]
  - Psoriatic arthropathy [Unknown]
  - Haemoglobin decreased [Unknown]
  - Red cell distribution width increased [Unknown]
  - Double stranded DNA antibody positive [Unknown]
  - Knee deformity [Unknown]
  - Musculoskeletal stiffness [Unknown]
  - Rheumatoid factor increased [Unknown]
  - Chest X-ray abnormal [Unknown]
  - Tendon disorder [Unknown]
  - Antibody test positive [Unknown]
  - Glycosylated haemoglobin increased [Unknown]
  - Joint range of motion decreased [Unknown]
  - Blood triglycerides increased [Unknown]
  - Interstitial lung disease [Recovered/Resolved]

NARRATIVE: CASE EVENT DATE: 201909
